FAERS Safety Report 25575383 (Version 1)
Quarter: 2025Q3

REPORT INFORMATION
  Report Type: Spontaneous
  Country: US (occurrence: US)
  Receive Date: 20250718
  Receipt Date: 20250718
  Transmission Date: 20251020
  Serious: Yes (Hospitalization, Other)
  Sender: TEVA
  Company Number: US-TEVA-VS-3351946

PATIENT
  Age: 26 Year
  Sex: Female
  Weight: 58.967 kg

DRUGS (6)
  1. RIZATRIPTAN [Suspect]
     Active Substance: RIZATRIPTAN
     Indication: Migraine
     Route: 048
  2. BUSPAR [Concomitant]
     Active Substance: BUSPIRONE HYDROCHLORIDE
     Indication: Anxiety
     Route: 048
  3. PROVENTIL [Concomitant]
     Active Substance: ALBUTEROL
     Indication: Asthma
  4. MIDODRINE [Concomitant]
     Active Substance: MIDODRINE
     Indication: Autonomic nervous system imbalance
     Route: 048
     Dates: end: 202505
  5. NURTEC ODT [Suspect]
     Active Substance: RIMEGEPANT SULFATE
     Indication: Migraine
     Route: 048
     Dates: start: 2023
  6. TYLENOL [Suspect]
     Active Substance: ACETAMINOPHEN
     Indication: Migraine
     Route: 048
     Dates: start: 2023

REACTIONS (6)
  - Threatened labour [Unknown]
  - Shortened cervix [Recovered/Resolved]
  - Live birth [Unknown]
  - Premature separation of placenta [Recovered/Resolved]
  - Premature labour [Recovered/Resolved]
  - Morning sickness [Recovered/Resolved]

NARRATIVE: CASE EVENT DATE: 20241025
